FAERS Safety Report 26154346 (Version 1)
Quarter: 2025Q4

REPORT INFORMATION
  Report Type: Spontaneous
  Country: US (occurrence: US)
  Receive Date: 20251215
  Receipt Date: 20251215
  Transmission Date: 20260118
  Serious: No
  Sender: SANOFI AVENTIS
  Company Number: US-SANOFI-02746331

PATIENT
  Age: 42 Year
  Sex: Female

DRUGS (1)
  1. DUPIXENT [Suspect]
     Active Substance: DUPILUMAB
     Indication: Dermatitis atopic
     Dosage: 300 MG
     Route: 065
     Dates: end: 202508

REACTIONS (12)
  - Petechiae [Unknown]
  - Otitis externa [Unknown]
  - Pustule [Unknown]
  - Swelling [Unknown]
  - Ear pain [Unknown]
  - Nausea [Unknown]
  - Eczema [Unknown]
  - Scab [Unknown]
  - Skin ulcer [Unknown]
  - Contusion [Unknown]
  - Skin exfoliation [Unknown]
  - Headache [Unknown]

NARRATIVE: CASE EVENT DATE: 20250101
